FAERS Safety Report 18809195 (Version 1)
Quarter: 2021Q1

REPORT INFORMATION
  Report Type: Spontaneous
  Country: FR (occurrence: FR)
  Receive Date: 20210129
  Receipt Date: 20210129
  Transmission Date: 20210419
  Serious: Yes (Other)
  Sender: FDA-Public Use
  Company Number: FR-VIIV HEALTHCARE LIMITED-FR2021016481

PATIENT
  Age: 44 Year
  Sex: Male
  Weight: 63 kg

DRUGS (1)
  1. TRIUMEQ [Suspect]
     Active Substance: ABACAVIR SULFATE\DOLUTEGRAVIR SODIUM\LAMIVUDINE
     Indication: HIV INFECTION
     Dosage: 1 DF
     Route: 048
     Dates: start: 20200723, end: 20201202

REACTIONS (3)
  - Myalgia [Recovered/Resolved]
  - Neuropathy peripheral [Recovered/Resolved]
  - Dysaesthesia [Recovered/Resolved]

NARRATIVE: CASE EVENT DATE: 20201202
